FAERS Safety Report 6834018-6 (Version None)
Quarter: 2010Q3

REPORT INFORMATION
  Report Type: 
  Country: None (occurrence: None)
  Receive Date: 20100712
  Receipt Date: 20100706
  Transmission Date: 20110219
  Serious: Yes (Death)
  Sender: FDA-Public Use
  Company Number: US-AMGEN-QUU422558

PATIENT
  Sex: Female

DRUGS (3)
  1. NPLATE [Suspect]
     Indication: THROMBOCYTOPENIA
     Dates: start: 20090708
  2. CORTICOSTEROIDS [Concomitant]
     Dates: start: 20090314
  3. DANAZOL [Concomitant]
     Dates: start: 20090501

REACTIONS (1)
  - DEATH [None]
